FAERS Safety Report 7169768-8 (Version None)
Quarter: 2010Q4

REPORT INFORMATION
  Report Type: 
  Country: None (occurrence: None)
  Receive Date: 20101217
  Receipt Date: 20101109
  Transmission Date: 20110411
  Serious: No
  Sender: FDA-Public Use
  Company Number: A0854331A

PATIENT
  Age: 51 Year
  Sex: Male
  Weight: 77.3 kg

DRUGS (6)
  1. SORIATANE [Suspect]
     Indication: ICHTHYOSIS
     Dosage: 10MG PER DAY
     Route: 048
     Dates: start: 20080327, end: 20100101
  2. MULTI-VITAMIN [Concomitant]
  3. EUCERIN [Concomitant]
  4. PROTOPIC [Concomitant]
  5. NIZORAL [Concomitant]
  6. AQUAPHOR [Concomitant]

REACTIONS (4)
  - HYPOAESTHESIA [None]
  - MIDDLE INSOMNIA [None]
  - MUSCULAR WEAKNESS [None]
  - PRODUCT COUNTERFEIT [None]
